FAERS Safety Report 12128050 (Version 1)
Quarter: 2016Q1

REPORT INFORMATION
  Report Type: Spontaneous
  Country: US (occurrence: US)
  Receive Date: 20160229
  Receipt Date: 20160229
  Transmission Date: 20160526
  Serious: Yes (Death)
  Sender: FDA-Public Use
  Company Number: US-BAYER-2016-037126

PATIENT
  Age: 86 Year
  Sex: Female
  Weight: 53.97 kg

DRUGS (1)
  1. AFRIN ORIGINAL [Suspect]
     Active Substance: OXYMETAZOLINE HYDROCHLORIDE
     Indication: NASAL CONGESTION
     Dosage: 1 GTT, HS (ONE DROP IN EACH NOSTRIL)
     Route: 045

REACTIONS (2)
  - Death [Fatal]
  - Product use issue [None]

NARRATIVE: CASE EVENT DATE: 19890118
